FAERS Safety Report 24104713 (Version 1)
Quarter: 2024Q3

REPORT INFORMATION
  Report Type: Spontaneous
  Country: US (occurrence: None)
  Receive Date: 20240717
  Receipt Date: 20240717
  Transmission Date: 20241017
  Serious: No
  Sender: Public
  Company Number: None

PATIENT
  Age: 46 Year
  Sex: Male

DRUGS (9)
  1. CABOMETYX [Suspect]
     Active Substance: CABOZANTINIB S-MALATE
     Indication: Hepatocellular carcinoma
     Dosage: 60 MG DAILY ORAL
     Route: 048
     Dates: start: 20240708, end: 20240714
  2. EPLERENONE [Concomitant]
     Active Substance: EPLERENONE
  3. FUROSEMIDE [Concomitant]
     Active Substance: FUROSEMIDE
  4. LACTULOSE [Concomitant]
     Active Substance: LACTULOSE
  5. MIDODRINE [Concomitant]
     Active Substance: MIDODRINE
  6. VITAMINS [Concomitant]
     Active Substance: VITAMINS
  7. PROTONIX [Concomitant]
     Active Substance: PANTOPRAZOLE SODIUM
  8. TRAZODONE [Concomitant]
     Active Substance: TRAZODONE HYDROCHLORIDE
  9. XIFAXAN [Concomitant]
     Active Substance: RIFAXIMIN

REACTIONS (2)
  - Vomiting [None]
  - Brain fog [None]

NARRATIVE: CASE EVENT DATE: 20240712
